FAERS Safety Report 4288834-8 (Version None)
Quarter: 2004Q1

REPORT INFORMATION
  Report Type: 
  Country: None (occurrence: None)
  Receive Date: 20040203
  Receipt Date: 20031104
  Transmission Date: 20041129
  Serious: Yes (Other)
  Sender: FDA-Public Use
  Company Number: 200328065BWH

PATIENT
  Sex: Male

DRUGS (2)
  1. AVELOX [Suspect]
  2. COLD MEDICINE [Concomitant]

REACTIONS (3)
  - ANAPHYLACTIC REACTION [None]
  - PRURITUS [None]
  - RASH [None]
